FAERS Safety Report 15784414 (Version 5)
Quarter: 2019Q3

REPORT INFORMATION
  Report Type: Report from Study
  Country: PE (occurrence: PE)
  Receive Date: 20190103
  Receipt Date: 20190815
  Transmission Date: 20191004
  Serious: Yes (Other)
  Sender: FDA-Public Use
  Company Number: PE-ROCHE-2238361

PATIENT
  Age: 9 Year
  Sex: Female
  Weight: 45 kg

DRUGS (2)
  1. XOLAIR [Suspect]
     Active Substance: OMALIZUMAB
     Route: 058
     Dates: start: 20190720
  2. XOLAIR [Suspect]
     Active Substance: OMALIZUMAB
     Indication: ASTHMA
     Route: 058
     Dates: start: 20181222

REACTIONS (18)
  - Cheilitis [Unknown]
  - Hyperventilation [Unknown]
  - Pyrexia [Recovered/Resolved]
  - Urticaria [Recovered/Resolved]
  - Flushing [Unknown]
  - Skin oedema [Unknown]
  - Headache [Unknown]
  - Anaphylactoid reaction [Unknown]
  - Urticaria [Unknown]
  - Dyspnoea [Recovered/Resolved]
  - Cough [Unknown]
  - Lip dry [Unknown]
  - Lip discolouration [Unknown]
  - Chest discomfort [Unknown]
  - Erythema [Unknown]
  - Wheezing [Recovered/Resolved]
  - Agitation [Recovered/Resolved]
  - Skin swelling [Unknown]

NARRATIVE: CASE EVENT DATE: 20181222
